FAERS Safety Report 8200140-5 (Version None)
Quarter: 2012Q1

REPORT INFORMATION
  Report Type: 
  Country: None (occurrence: None)
  Receive Date: 20120309
  Receipt Date: 20120309
  Transmission Date: 20120608
  Serious: Yes (Disabling, Other)
  Sender: FDA-Public Use
  Company Number: None

PATIENT
  Age: 76 Year
  Sex: Female
  Weight: 58.9676 kg

DRUGS (1)
  1. CIPROFLOXACIN HCL [Suspect]
     Indication: URINARY TRACT INFECTION
     Dosage: 2 DAILY 7 DAYS
     Dates: start: 20111222, end: 20111229

REACTIONS (5)
  - GAIT DISTURBANCE [None]
  - MYALGIA [None]
  - PAIN IN EXTREMITY [None]
  - TENDON PAIN [None]
  - FLANK PAIN [None]
